FAERS Safety Report 5214869-4 (Version None)
Quarter: 2006Q4

REPORT INFORMATION
  Report Type: 
  Country: None (occurrence: None)
  Receive Date: 20061107
  Receipt Date: 20060613
  Transmission Date: 20070319
  Serious: No
  Sender: FDA-Public Use
  Company Number: 200614111BWH

PATIENT
  Age: 57 Year
  Sex: Male

DRUGS (9)
  1. LEVITRA [Suspect]
     Indication: ERECTILE DYSFUNCTION
     Dosage: 20  MG, BIW, ORAL
     Route: 048
     Dates: start: 20051201
  2. LIPITOR [Concomitant]
  3. DOSTINEX [Concomitant]
  4. CENTRUM (MINERALS NOS, VITAMINS NOS) [Concomitant]
  5. TRAZODONE HCL [Concomitant]
  6. CLONOPIN [Concomitant]
  7. LITHOBID [Concomitant]
  8. CYMBALTA [Concomitant]
  9. ALCOHOL [Concomitant]

REACTIONS (3)
  - FATIGUE [None]
  - HANGOVER [None]
  - HEADACHE [None]
